FAERS Safety Report 4491268-4 (Version None)
Quarter: 2004Q4

REPORT INFORMATION
  Report Type: 
  Country: None (occurrence: None)
  Receive Date: 20041101
  Receipt Date: 20041101
  Transmission Date: 20050328
  Serious: Yes (Hospitalization)
  Sender: FDA-Public Use
  Company Number: None

PATIENT
  Age: 83 Year
  Sex: Male
  Weight: 68.0396 kg

DRUGS (2)
  1. GEMCITABINE [Suspect]
     Indication: ADENOCARCINOMA PANCREAS
     Dosage: 2700 MG IV OVER 150 MIN
     Route: 042
     Dates: start: 20041014
  2. GEMCITABINE [Suspect]
     Indication: ADENOCARCINOMA PANCREAS
     Dosage: 2700 MG IV OVER 150 MIN
     Route: 042
     Dates: start: 20041021

REACTIONS (2)
  - CHEST PAIN [None]
  - NECK PAIN [None]
